FAERS Safety Report 25596692 (Version 1)
Quarter: 2025Q3

REPORT INFORMATION
  Report Type: Spontaneous
  Country: RU (occurrence: RU)
  Receive Date: 20250723
  Receipt Date: 20250723
  Transmission Date: 20251020
  Serious: Yes (Life-Threatening, Other)
  Sender: GLAND PHARMA LTD
  Company Number: RU-GLANDPHARMA-RU-2025GLNLIT01606

PATIENT
  Age: 34 Year
  Sex: Female

DRUGS (8)
  1. DOXORUBICIN HYDROCHLORIDE [Suspect]
     Active Substance: DOXORUBICIN HYDROCHLORIDE
     Indication: Plasmablastic lymphoma
     Route: 065
     Dates: start: 20230909, end: 20230927
  2. ETOPOSIDE [Suspect]
     Active Substance: ETOPOSIDE
     Indication: Plasmablastic lymphoma
     Route: 065
     Dates: start: 20230909, end: 20230927
  3. PREDNISONE [Suspect]
     Active Substance: PREDNISONE
     Indication: Plasmablastic lymphoma
     Route: 065
     Dates: start: 20230909, end: 20230927
  4. VINCRISTINE [Suspect]
     Active Substance: VINCRISTINE
     Indication: Plasmablastic lymphoma
     Route: 065
     Dates: start: 20230909, end: 20230927
  5. CYCLOPHOSPHAMIDE [Suspect]
     Active Substance: CYCLOPHOSPHAMIDE
     Indication: Plasmablastic lymphoma
     Route: 065
     Dates: start: 20230909, end: 20230927
  6. METHOTREXATE [Concomitant]
     Active Substance: METHOTREXATE
     Route: 037
  7. CYTARABINE [Concomitant]
     Active Substance: CYTARABINE
     Route: 037
  8. DEXAMETHASONE [Concomitant]
     Active Substance: DEXAMETHASONE
     Route: 037

REACTIONS (13)
  - Granulocytopenia [Unknown]
  - Cytotoxic lesions of corpus callosum [Recovered/Resolved]
  - Oesophagitis ulcerative [Unknown]
  - Enterocolitis [Unknown]
  - Posterior reversible encephalopathy syndrome [Unknown]
  - Osmotic demyelination syndrome [Unknown]
  - Diabetes insipidus [Unknown]
  - Anaemia [Unknown]
  - Febrile neutropenia [Unknown]
  - Thrombocytopenia [Unknown]
  - Hypovolaemia [Unknown]
  - Hypernatraemia [Recovered/Resolved]
  - Product use in unapproved indication [Unknown]
